FAERS Safety Report 4795058-4 (Version None)
Quarter: 2005Q4

REPORT INFORMATION
  Report Type: 
  Country: None (occurrence: None)
  Receive Date: 20051006
  Receipt Date: 20050923
  Transmission Date: 20060501
  Serious: Yes (Hospitalization)
  Sender: FDA-Public Use
  Company Number: 2005BI015186

PATIENT
  Age: 43 Year
  Sex: Male

DRUGS (1)
  1. AVONEX [Suspect]
     Indication: MULTIPLE SCLEROSIS
     Dosage: 30 UG; QW; IM
     Route: 030
     Dates: start: 20040911

REACTIONS (5)
  - DIFFICULTY IN WALKING [None]
  - INJECTION SITE INFECTION [None]
  - MUSCLE DISORDER [None]
  - SEPSIS [None]
  - WEIGHT DECREASED [None]
